FAERS Safety Report 9731457 (Version 1)
Quarter: 2013Q4

REPORT INFORMATION
  Report Type: Report from Study
  Country: DE (occurrence: US)
  Receive Date: 20131203
  Receipt Date: 20131203
  Transmission Date: 20140711
  Serious: Yes (Life-Threatening, Other)
  Sender: FDA-Public Use
  Company Number: DE-BAYER-2013-144384

PATIENT
  Age: 27 Year
  Sex: Female

DRUGS (1)
  1. BEYAZ [Suspect]
     Indication: CHEMICAL CONTRACEPTION
     Dosage: UNK
     Route: 048
     Dates: start: 201203, end: 201208

REACTIONS (2)
  - Pulmonary embolism [None]
  - Pleurisy [None]
